FAERS Safety Report 5199815-4 (Version None)
Quarter: 2007Q1

REPORT INFORMATION
  Report Type: 
  Country: None (occurrence: None)
  Receive Date: 20070105
  Receipt Date: 20061229
  Transmission Date: 20070707
  Serious: Yes (Death, Life-Threatening, Hospitalization, Disabling)
  Sender: FDA-Public Use
  Company Number: FR-AVENTIS-200614245FR

PATIENT
  Age: 64 Year
  Sex: Male

DRUGS (7)
  1. TAXOTERE [Suspect]
     Indication: SQUAMOUS CELL CARCINOMA
     Route: 042
     Dates: start: 20061106, end: 20061106
  2. CISPLATIN [Suspect]
     Indication: SQUAMOUS CELL CARCINOMA
     Route: 042
     Dates: start: 20061106, end: 20061106
  3. FLUOROURACIL [Suspect]
     Indication: SQUAMOUS CELL CARCINOMA
     Route: 042
     Dates: start: 20061106, end: 20061110
  4. NICARDIPINE HCL [Concomitant]
     Indication: DRUG USE FOR UNKNOWN INDICATION
  5. TEMERIT [Concomitant]
     Indication: HYPERTENSION
  6. DEXAMETHASONE [Concomitant]
     Route: 041
     Dates: start: 20061105, end: 20061107
  7. ONDANSETRON [Concomitant]
     Route: 048
     Dates: start: 20061105

REACTIONS (3)
  - CONFUSIONAL STATE [None]
  - GASTROINTESTINAL NECROSIS [None]
  - ILEUS [None]
